FAERS Safety Report 10385890 (Version 1)
Quarter: 2014Q3

REPORT INFORMATION
  Report Type: Spontaneous
  Country: US (occurrence: US)
  Receive Date: 20140814
  Receipt Date: 20140814
  Transmission Date: 20150326
  Serious: No
  Sender: FDA-Public Use
  Company Number: US-GALDERMA-US13003120

PATIENT
  Sex: Male

DRUGS (4)
  1. DUAC (CLINDAMYCIN PHOSPHATE AND BENZOYL PEROXIDE) GEL, 1.2%/5% [Concomitant]
     Indication: ACNE
     Route: 061
     Dates: start: 2011
  2. DIFFERIN [Suspect]
     Active Substance: ADAPALENE
     Indication: ACNE
     Route: 061
     Dates: start: 201307
  3. CLEAN AND CLEAR 5% BENZOYL PEROXIDE SCRUB [Concomitant]
     Indication: THERAPEUTIC SKIN CARE TOPICAL
     Route: 061
  4. CERAVE AM FACIAL MOISTURIZING [Concomitant]
     Active Substance: HOMOSALATE\OCTINOXATE\OCTOCRYLENE\ZINC OXIDE
     Indication: DRY SKIN PROPHYLAXIS
     Route: 061

REACTIONS (1)
  - Erythema [Not Recovered/Not Resolved]
